FAERS Safety Report 6997980-7 (Version None)
Quarter: 2010Q3

REPORT INFORMATION
  Report Type: 
  Country: None (occurrence: None)
  Receive Date: 20100920
  Receipt Date: 20070706
  Transmission Date: 20110219
  Serious: Yes (Other)
  Sender: FDA-Public Use
  Company Number: US-ASTRAZENECA-2006UW24543

PATIENT
  Age: 479 Month
  Sex: Female
  Weight: 88.9 kg

DRUGS (17)
  1. SEROQUEL [Suspect]
     Indication: SCHIZOPHRENIA
     Route: 048
     Dates: start: 19971001
  2. SEROQUEL [Suspect]
     Indication: MENTAL DISORDER
     Route: 048
     Dates: start: 19971001
  3. SEROQUEL [Suspect]
     Indication: PARANOIA
     Route: 048
     Dates: start: 19971001
  4. SEROQUEL [Suspect]
     Indication: DEPRESSION
     Route: 048
     Dates: start: 19971001
  5. SEROQUEL [Suspect]
     Indication: INSOMNIA
     Route: 048
     Dates: start: 19971001
  6. SEROQUEL [Suspect]
     Dosage: 100 - 600 MG, FLUCTUATING
     Route: 048
     Dates: start: 20050512
  7. SEROQUEL [Suspect]
     Dosage: 100 - 600 MG, FLUCTUATING
     Route: 048
     Dates: start: 20050512
  8. SEROQUEL [Suspect]
     Dosage: 100 - 600 MG, FLUCTUATING
     Route: 048
     Dates: start: 20050512
  9. SEROQUEL [Suspect]
     Dosage: 100 - 600 MG, FLUCTUATING
     Route: 048
     Dates: start: 20050512
  10. SEROQUEL [Suspect]
     Dosage: 100 - 600 MG, FLUCTUATING
     Route: 048
     Dates: start: 20050512
  11. ZOLOFT [Concomitant]
     Indication: MAJOR DEPRESSION
     Dosage: 50 - 150 MG
     Route: 048
     Dates: start: 20020501
  12. ZYPREXA [Concomitant]
     Indication: MAJOR DEPRESSION
     Route: 048
     Dates: start: 20020501
  13. TOPROL-XL [Concomitant]
     Route: 048
     Dates: start: 20061006
  14. BENICAR HCT [Concomitant]
     Dosage: 40 - 25 MG
     Dates: start: 20061106
  15. CLONAZEPAM [Concomitant]
     Dates: start: 20070118
  16. CITALOPRAM HYDROBROMIDE [Concomitant]
     Dates: start: 20070118
  17. GEODON [Concomitant]
     Dates: start: 20070118

REACTIONS (5)
  - DIABETIC COMA [None]
  - DIABETIC KETOACIDOSIS [None]
  - PANCREATITIS [None]
  - TARDIVE DYSKINESIA [None]
  - TYPE 2 DIABETES MELLITUS [None]
